FAERS Safety Report 14736537 (Version 1)
Quarter: 2018Q2

REPORT INFORMATION
  Report Type: Report from Study
  Country: DE (occurrence: DE)
  Receive Date: 20180409
  Receipt Date: 20180409
  Transmission Date: 20180711
  Serious: Yes (Other)
  Sender: FDA-Public Use
  Company Number: DE-TEVA-660918GER

PATIENT
  Sex: Female

DRUGS (1)
  1. COPAXONE [Suspect]
     Active Substance: GLATIRAMER ACETATE
     Indication: MULTIPLE SCLEROSIS
     Dates: start: 20150901, end: 20160601

REACTIONS (2)
  - Injection site necrosis [Recovering/Resolving]
  - Injection site haematoma [Recovering/Resolving]

NARRATIVE: CASE EVENT DATE: 2016
